FAERS Safety Report 10449503 (Version 1)
Quarter: 2014Q3

REPORT INFORMATION
  Report Type: Spontaneous
  Country: US (occurrence: None)
  Receive Date: 20140911
  Receipt Date: 20140911
  Transmission Date: 20150326
  Serious: Yes (Other)
  Sender: FDA-Public Use
  Company Number: None

PATIENT
  Age: 47 Year
  Sex: Female
  Weight: 74.84 kg

DRUGS (1)
  1. CLINDAMYCIN [Suspect]
     Active Substance: CLINDAMYCIN\CLINDAMYCIN PHOSPHATE
     Indication: CELLULITIS
     Dosage: 1 PILL  FOUR TIMES DAILY TAKEN BY MOUTH
     Route: 048
     Dates: start: 20140812, end: 20140816

REACTIONS (4)
  - Diarrhoea [None]
  - Clostridium difficile infection [None]
  - Oral fungal infection [None]
  - Vomiting [None]

NARRATIVE: CASE EVENT DATE: 20140829
